FAERS Safety Report 10007228 (Version 1)
Quarter: 2014Q1

REPORT INFORMATION
  Report Type: Spontaneous
  Country: US (occurrence: None)
  Receive Date: 20140311
  Receipt Date: 20140311
  Transmission Date: 20141002
  Serious: Yes (Hospitalization)
  Sender: FDA-Public Use
  Company Number: SYM-2014-18325

PATIENT
  Age: 46 Year
  Sex: Female

DRUGS (3)
  1. XENAZINE [Suspect]
     Indication: PARKINSONISM
     Dosage: 12.5 MG, 2 IN 1 D, ORAL
     Route: 048
     Dates: start: 200906
  2. VITAMIN D (ERGOCALCIFEROL) [Concomitant]
  3. INSULIN (INSULIN) (PUMP) (INSULIN) [Concomitant]

REACTIONS (1)
  - Diabetic ketoacidosis [None]
